FAERS Safety Report 19600324 (Version 2)
Quarter: 2021Q3

REPORT INFORMATION
  Report Type: Report from Study
  Country: US (occurrence: US)
  Receive Date: 20210723
  Receipt Date: 20210729
  Transmission Date: 20211014
  Serious: Yes (Hospitalization)
  Sender: FDA-Public Use
  Company Number: US-GLAXOSMITHKLINE-US2021156377

PATIENT
  Age: 79 Year
  Sex: Female
  Weight: 56.6 kg

DRUGS (12)
  1. BELANTAMAB MAFODOTIN. [Suspect]
     Active Substance: BELANTAMAB MAFODOTIN
     Indication: PLASMA CELL MYELOMA
     Dosage: 115 MG, CYC
     Route: 042
     Dates: start: 20210223
  2. BORTEZOMIB. [Suspect]
     Active Substance: BORTEZOMIB
     Indication: PLASMA CELL MYELOMA
     Dosage: 2.08 MG, CYC
     Route: 058
     Dates: start: 20210223
  3. SODIUM CHLORIDE. [Concomitant]
     Active Substance: SODIUM CHLORIDE
     Dosage: 0.9 %, PRN
     Route: 065
     Dates: start: 20210726
  4. ALTEPLASE. [Concomitant]
     Active Substance: ALTEPLASE
     Dosage: 2 MG, PRN
     Route: 065
     Dates: start: 20210717
  5. OXYCODONE [Concomitant]
     Active Substance: OXYCODONE
     Dosage: 10 MG, PRN
     Route: 048
     Dates: start: 20210719
  6. DEXAMETHASONE NON GSK [Suspect]
     Active Substance: DEXAMETHASONE
     Indication: PLASMA CELL MYELOMA
     Dosage: 10 MG, QD
     Route: 048
     Dates: start: 20210223
  7. OXYCODONE SR [Concomitant]
     Active Substance: OXYCODONE
     Dosage: 10 MG, BID
     Route: 048
     Dates: start: 20210726
  8. PANTOPRAZOLE SODIUM. [Concomitant]
     Active Substance: PANTOPRAZOLE SODIUM
     Dosage: 40 MG, BID
     Route: 048
     Dates: start: 20210717
  9. LENALIDOMIDE [Suspect]
     Active Substance: LENALIDOMIDE
     Indication: PLASMA CELL MYELOMA
     Dosage: 1 DF, CYC
     Route: 048
     Dates: start: 20210303
  10. TYLENOL [Concomitant]
     Active Substance: ACETAMINOPHEN
     Dosage: 650 MG, PRN
     Route: 048
     Dates: start: 20210721
  11. AUGMENTIN [Concomitant]
     Active Substance: AMOXICILLIN\CLAVULANATE POTASSIUM
     Dosage: 875 MG, BID
     Route: 048
     Dates: start: 20210725
  12. MELATONIN [Concomitant]
     Active Substance: MELATONIN
     Route: 048
     Dates: start: 20210717

REACTIONS (2)
  - Cholecystitis [Recovering/Resolving]
  - Adenocarcinoma pancreas [Recovering/Resolving]

NARRATIVE: CASE EVENT DATE: 20210717
